APPROVED DRUG PRODUCT: DENTIPATCH
Active Ingredient: LIDOCAINE
Strength: 23MG/PATCH
Dosage Form/Route: FILM, EXTENDED RELEASE;BUCCAL
Application: N020575 | Product #001
Applicant: NOVEN PHARMACEUTICALS INC
Approved: May 21, 1996 | RLD: No | RS: No | Type: DISCN